FAERS Safety Report 4772515-8 (Version None)
Quarter: 2005Q3

REPORT INFORMATION
  Report Type: 
  Country: None (occurrence: None)
  Receive Date: 20050916
  Receipt Date: 20050916
  Transmission Date: 20060218
  Serious: Yes (Hospitalization)
  Sender: FDA-Public Use
  Company Number: None

PATIENT
  Age: 50 Year
  Sex: Male
  Weight: 91.8 kg

DRUGS (14)
  1. CAMPATH [Suspect]
     Indication: IMMUNOSUPPRESSION
     Dosage: 30 MG WHEN ALC}200 IV
     Route: 042
     Dates: start: 20050617, end: 20050722
  2. CAMPATH [Suspect]
     Indication: PANCREAS TRANSPLANT
     Dosage: 30 MG WHEN ALC}200 IV
     Route: 042
     Dates: start: 20050617, end: 20050722
  3. CAMPATH [Suspect]
     Indication: RENAL TRANSPLANT
     Dosage: 30 MG WHEN ALC}200 IV
     Route: 042
     Dates: start: 20050617, end: 20050722
  4. CELLCEPT [Concomitant]
  5. LIPITOR [Concomitant]
  6. CALCIUM WITH VITAMIN D [Concomitant]
  7. LASIX [Concomitant]
  8. SYNTHROID [Concomitant]
  9. VALCYTE [Concomitant]
  10. COLACE [Concomitant]
  11. TYLENOL PM [Concomitant]
  12. PRILOSEC [Concomitant]
  13. MYCELEX [Concomitant]
  14. BACTRIM [Concomitant]

REACTIONS (2)
  - BLOOD CREATININE INCREASED [None]
  - KIDNEY TRANSPLANT REJECTION [None]
